FAERS Safety Report 7383617-4 (Version None)
Quarter: 2011Q1

REPORT INFORMATION
  Report Type: 
  Country: None (occurrence: None)
  Receive Date: 20110325
  Receipt Date: 20110325
  Transmission Date: 20110831
  Serious: Yes (Other)
  Sender: FDA-Public Use
  Company Number: None

PATIENT
  Age: 46 Year
  Sex: Female
  Weight: 66.2252 kg

DRUGS (2)
  1. LEVOTHYROXINE SODIUM [Suspect]
     Indication: HYPOTHYROIDISM
     Dosage: LEVOTHYROXINE TABLETS 112MG DAILY
  2. ZOLOFT [Suspect]
     Indication: SEASONAL AFFECTIVE DISORDER
     Dosage: SERTRALINE 100MG DAILY

REACTIONS (2)
  - PRURITUS [None]
  - ALOPECIA [None]
